FAERS Safety Report 21335849 (Version 1)
Quarter: 2022Q3

REPORT INFORMATION
  Report Type: Spontaneous
  Country: US (occurrence: None)
  Receive Date: 20220915
  Receipt Date: 20220915
  Transmission Date: 20221027
  Serious: Yes (Other)
  Sender: FDA-Public Use
  Company Number: US-ROCHE-3174830

PATIENT
  Age: 57 Year
  Sex: Female
  Weight: 99.8 kg

DRUGS (5)
  1. CELLCEPT [Suspect]
     Active Substance: MYCOPHENOLATE MOFETIL
     Indication: Product used for unknown indication
     Route: 065
  2. RAYOS [Suspect]
     Active Substance: PREDNISONE
     Indication: Product used for unknown indication
     Dosage: ONGOING
     Route: 065
  3. REMODULIN [Suspect]
     Active Substance: TREPROSTINIL
     Indication: Pulmonary arterial hypertension
     Dosage: (CONCENTRATION 1.0 MG/ML)
     Route: 041
     Dates: start: 20191219
  4. REMODULIN [Suspect]
     Active Substance: TREPROSTINIL
     Route: 041
  5. OPSUMIT [Concomitant]
     Active Substance: MACITENTAN

REACTIONS (3)
  - Fatigue [Not Recovered/Not Resolved]
  - Weight increased [Not Recovered/Not Resolved]
  - Hip arthroplasty [Unknown]
